FAERS Safety Report 6820767-2 (Version None)
Quarter: 2010Q3

REPORT INFORMATION
  Report Type: 
  Country: None (occurrence: None)
  Receive Date: 20100707
  Receipt Date: 20040303
  Transmission Date: 20110219
  Serious: No
  Sender: FDA-Public Use
  Company Number: US-PFIZER INC-2004015281

PATIENT
  Sex: Female

DRUGS (5)
  1. ZOLOFT [Suspect]
     Indication: DEPRESSION
     Dates: start: 20040201
  2. ZOLOFT [Suspect]
     Indication: PANIC ATTACK
  3. XANAX [Concomitant]
     Indication: PANIC ATTACK
  4. LIPITOR [Concomitant]
     Indication: BLOOD CHOLESTEROL
  5. TIAZAC [Concomitant]
     Indication: HYPERTENSION
     Dates: start: 20030101

REACTIONS (1)
  - WEIGHT INCREASED [None]
